FAERS Safety Report 4410649-8 (Version None)
Quarter: 2004Q3

REPORT INFORMATION
  Report Type: 
  Country: None (occurrence: None)
  Receive Date: 20040728
  Receipt Date: 20040728
  Transmission Date: 20050211
  Serious: Yes (Life-Threatening, Hospitalization)
  Sender: FDA-Public Use
  Company Number: None

PATIENT
  Sex: Male
  Weight: 90.7194 kg

DRUGS (1)
  1. ALLERGY INJECTION [Suspect]
     Indication: RHINITIS ALLERGIC
     Dosage: 03/29/04 05/22/04 SUBDERMAL
     Route: 059
     Dates: start: 20040329, end: 20040520

REACTIONS (10)
  - DISCOMFORT [None]
  - EMOTIONAL DISORDER [None]
  - FEELING ABNORMAL [None]
  - FEELING HOT [None]
  - HEART RATE INCREASED [None]
  - NAUSEA [None]
  - PALPITATIONS [None]
  - POLYURIA [None]
  - PRURITUS [None]
  - RASH [None]
